FAERS Safety Report 23877509 (Version 1)
Quarter: 2024Q2

REPORT INFORMATION
  Report Type: Spontaneous
  Country: PL (occurrence: PL)
  Receive Date: 20240521
  Receipt Date: 20240521
  Transmission Date: 20240716
  Serious: Yes (Life-Threatening, Other)
  Sender: FDA-Public Use
  Company Number: PL-CELLTRION INC.-2024PL011570

PATIENT

DRUGS (4)
  1. INFLIXIMAB [Suspect]
     Active Substance: INFLIXIMAB
     Indication: Psoriasis
     Dosage: 600 MILLIGRAM, EVERY 8 WEEK
     Route: 042
     Dates: start: 20171121, end: 20180430
  2. LAPIXEN [Concomitant]
     Indication: Essential hypertension
     Dosage: 1X1TABL.
     Route: 048
     Dates: start: 20180624
  3. NEBIVOLOL [Concomitant]
     Active Substance: NEBIVOLOL
     Indication: Essential hypertension
     Dosage: 1X0,5TABL.
     Route: 048
     Dates: start: 20180624
  4. HYDROCHLOROTHIAZIDE\TELMISARTAN [Concomitant]
     Active Substance: HYDROCHLOROTHIAZIDE\TELMISARTAN
     Indication: Essential hypertension
     Dosage: 1X1TABL.
     Route: 048
     Dates: start: 20180624

REACTIONS (1)
  - Pulmonary embolism [Recovered/Resolved with Sequelae]

NARRATIVE: CASE EVENT DATE: 20180624
